FAERS Safety Report 7651367-2 (Version None)
Quarter: 2011Q3

REPORT INFORMATION
  Report Type: 
  Country: None (occurrence: None)
  Receive Date: 20110802
  Receipt Date: 20110719
  Transmission Date: 20111222
  Serious: Yes (Death, Hospitalization, Other)
  Sender: FDA-Public Use
  Company Number: PHHY2011AR37374

PATIENT
  Sex: Male

DRUGS (2)
  1. MORPHINE [Concomitant]
  2. DIOVAN [Suspect]
     Indication: BLOOD PRESSURE
     Dosage: 1 DF, 160 MG DAILY

REACTIONS (5)
  - NEOPLASM MALIGNANT [None]
  - METASTASIS [None]
  - HYPOPHAGIA [None]
  - BONE NEOPLASM MALIGNANT [None]
  - PROSTATE CANCER [None]
